FAERS Safety Report 7137948-3 (Version None)
Quarter: 2010Q4

REPORT INFORMATION
  Report Type: 
  Country: None (occurrence: None)
  Receive Date: 20101206
  Receipt Date: 20101124
  Transmission Date: 20110411
  Serious: Yes (Other)
  Sender: FDA-Public Use
  Company Number: BR-SANOFI-AVENTIS-2010SA071733

PATIENT
  Age: 63 Year
  Sex: Male
  Weight: 68 kg

DRUGS (8)
  1. LANTUS [Suspect]
     Route: 058
     Dates: start: 20040101
  2. APIDRA [Suspect]
     Route: 065
     Dates: start: 20040101
  3. AUTOPEN 24 [Suspect]
     Dates: start: 20040101
  4. ENALAPRIL MALEATE [Concomitant]
     Route: 048
  5. GALVUS [Concomitant]
     Route: 048
  6. CARDURA [Concomitant]
     Indication: PROSTATIC DISORDER
     Route: 048
  7. CRESTOR [Concomitant]
     Route: 048
  8. CRESTOR [Concomitant]
     Route: 048

REACTIONS (9)
  - BLOOD AMYLASE INCREASED [None]
  - BLOOD GLUCOSE FLUCTUATION [None]
  - CARDIOMEGALY [None]
  - CONDITION AGGRAVATED [None]
  - FATIGUE [None]
  - HYPERHIDROSIS [None]
  - PANCREAS INFECTION [None]
  - PANCREATITIS [None]
  - RETINOPATHY [None]
